FAERS Safety Report 7990500-X (Version None)
Quarter: 2011Q4

REPORT INFORMATION
  Report Type: 
  Country: None (occurrence: None)
  Receive Date: 20111219
  Receipt Date: 20110804
  Transmission Date: 20120403
  Serious: No
  Sender: FDA-Public Use
  Company Number: US-ASTRAZENECA-2011SE46753

PATIENT
  Age: 72 Year
  Sex: Male
  Weight: 88.5 kg

DRUGS (8)
  1. PLAVIX [Concomitant]
  2. AMLODIPINE [Concomitant]
  3. FLUTICASONE PROPIONATE [Concomitant]
  4. ALLOPURINOL [Concomitant]
  5. ADVAIR DISKUS 100/50 [Concomitant]
  6. CRESTOR [Suspect]
     Indication: HYPERCHOLESTEROLAEMIA
     Route: 048
     Dates: start: 20110728
  7. METOPROLOL TARTRATE [Concomitant]
  8. LOSARTAN POTASSIUM [Concomitant]
     Indication: HYPERTENSION

REACTIONS (3)
  - OEDEMA PERIPHERAL [None]
  - COUGH [None]
  - PAIN IN EXTREMITY [None]
